FAERS Safety Report 25322436 (Version 2)
Quarter: 2025Q3

REPORT INFORMATION
  Report Type: Spontaneous
  Country: EU (occurrence: EU)
  Receive Date: 20250516
  Receipt Date: 20250809
  Transmission Date: 20251020
  Serious: Yes (Other)
  Sender: ALEXION PHARMACEUTICALS
  Company Number: EU-ASTRAZENECA-202505EEA009140DE

PATIENT
  Age: 63 Year
  Sex: Female

DRUGS (1)
  1. TAGRISSO [Suspect]
     Active Substance: OSIMERTINIB

REACTIONS (15)
  - Cardiomyopathy [Unknown]
  - Exercise tolerance decreased [Unknown]
  - Dilated cardiomyopathy [Unknown]
  - General physical health deterioration [Unknown]
  - Metastases to liver [Unknown]
  - Lymphadenopathy [Unknown]
  - Metastases to spleen [Unknown]
  - Metastases to central nervous system [Unknown]
  - Pulmonary mass [Unknown]
  - Paraesthesia [Unknown]
  - Muscular weakness [Unknown]
  - Central nervous system mass [Unknown]
  - Radiation necrosis [Unknown]
  - Malignant neoplasm oligoprogression [Unknown]
  - Dyspnoea [Unknown]
